FAERS Safety Report 6802266-7 (Version None)
Quarter: 2010Q2

REPORT INFORMATION
  Report Type: 
  Country: None (occurrence: None)
  Receive Date: 20100628
  Receipt Date: 20100618
  Transmission Date: 20101027
  Serious: Yes (Hospitalization)
  Sender: FDA-Public Use
  Company Number: ES-BIOGENIDEC-2010BI013488

PATIENT
  Age: 35 Year
  Sex: Male

DRUGS (2)
  1. AVONEX [Suspect]
     Indication: MULTIPLE SCLEROSIS
     Route: 030
     Dates: start: 20091101
  2. GEMFIBROZIL [Concomitant]
     Dosage: DOSE UNIT:900 UNKNOWN
     Dates: start: 20100310, end: 20100401

REACTIONS (1)
  - RHABDOMYOLYSIS [None]
